FAERS Safety Report 6030606-8 (Version None)
Quarter: 2009Q1

REPORT INFORMATION
  Report Type: 
  Country: None (occurrence: None)
  Receive Date: 20090106
  Receipt Date: 20090106
  Transmission Date: 20090719
  Serious: Yes (Other)
  Sender: FDA-Public Use
  Company Number: None

PATIENT
  Age: 58 Year
  Sex: Male
  Weight: 78.1 kg

DRUGS (1)
  1. TRICLOSAN [Suspect]
     Indication: SURGERY
     Dosage: OTHER
     Route: 050

REACTIONS (1)
  - SKIN LESION [None]
